FAERS Safety Report 7071636-7 (Version None)
Quarter: 2010Q4

REPORT INFORMATION
  Report Type: 
  Country: None (occurrence: None)
  Receive Date: 20101029
  Receipt Date: 20090930
  Transmission Date: 20110411
  Serious: No
  Sender: FDA-Public Use
  Company Number: A0809766A

PATIENT
  Age: 64 Year
  Sex: Female

DRUGS (18)
  1. ADVAIR DISKUS 100/50 [Suspect]
     Indication: ASTHMA
     Dosage: 1PUFF TWICE PER DAY
     Route: 055
     Dates: start: 20090122
  2. PROTONIX [Concomitant]
  3. SYNTHROID [Concomitant]
  4. TOPAMAX [Concomitant]
  5. XYZAL [Concomitant]
  6. ASPRO [Concomitant]
  7. NASACORT [Concomitant]
  8. ZETIA [Concomitant]
  9. BONIVA [Concomitant]
  10. PREMARIN [Concomitant]
  11. AYGESTIN [Concomitant]
  12. OSTEO BIFLEX [Concomitant]
  13. FISH OIL [Concomitant]
  14. THERAGRAN M [Concomitant]
  15. ASPIRIN [Concomitant]
  16. VITAMIN B + C [Concomitant]
  17. PYRIDOXINE HCL [Concomitant]
  18. VITAMIN B-12 [Concomitant]

REACTIONS (1)
  - EPISTAXIS [None]
